FAERS Safety Report 4806628-9 (Version None)
Quarter: 2005Q4

REPORT INFORMATION
  Report Type: 
  Country: None (occurrence: None)
  Receive Date: 20051019
  Receipt Date: 20051004
  Transmission Date: 20060501
  Serious: Yes (Death)
  Sender: FDA-Public Use
  Company Number: USA0509107070

PATIENT
  Age: 82 Year
  Sex: Female

DRUGS (20)
  1. HUMATROPE [Suspect]
     Indication: GROWTH HORMONE DEFICIENCY
     Dosage: 0.1 MG
     Dates: start: 20020520, end: 20050823
  2. LASIX [Concomitant]
  3. ESTRADIOL [Concomitant]
  4. CENTRUM SILVER [Concomitant]
  5. ACETYLSALICYLIC ACID SRT [Concomitant]
  6. PLAVIX [Concomitant]
  7. SODIUM BICARBONATE [Concomitant]
  8. AYGESTIN [Concomitant]
  9. FOLIC ACID [Concomitant]
  10. LEVOXYL [Concomitant]
  11. INSULINE ULTRALENTE (INSULIN ZINC SUSPENSION) [Concomitant]
  12. REGULAR INSULIN [Concomitant]
  13. PRAVACHOL [Concomitant]
  14. TRICOR [Concomitant]
  15. PHOSLO [Concomitant]
  16. DILTIAZEM [Concomitant]
  17. DDAVP (DESMOPRESSIN ACETATE) [Concomitant]
  18. XANAX [Concomitant]
  19. MACROBID [Concomitant]
  20. NIFEREX FORTE [Concomitant]

REACTIONS (7)
  - ANOREXIA [None]
  - BLOOD CREATININE INCREASED [None]
  - BLOOD UREA INCREASED [None]
  - DEHYDRATION [None]
  - DYSPNOEA [None]
  - INSULIN-LIKE GROWTH FACTOR INCREASED [None]
  - OEDEMA PERIPHERAL [None]
